FAERS Safety Report 8805541 (Version 2)
Quarter: 2015Q1

REPORT INFORMATION
  Report Type: Report from Study
  Country: US (occurrence: US)
  Receive Date: 20120924
  Receipt Date: 20150313
  Transmission Date: 20150721
  Serious: Yes (Death, Hospitalization)
  Sender: FDA-Public Use
  Company Number: US-ROCHE-1104473

PATIENT
  Sex: Female
  Weight: 80 kg

DRUGS (14)
  1. ABRAXANE [Concomitant]
     Active Substance: PACLITAXEL
     Route: 065
  2. AVASTIN [Suspect]
     Active Substance: BEVACIZUMAB
     Indication: BREAST CANCER FEMALE
     Route: 042
  3. CARBOPLATIN. [Concomitant]
     Active Substance: CARBOPLATIN
     Route: 042
  4. NORVASC [Concomitant]
     Active Substance: AMLODIPINE BESYLATE
  5. AVASTIN [Suspect]
     Active Substance: BEVACIZUMAB
     Route: 042
     Dates: start: 20060414
  6. ARANESP [Concomitant]
     Active Substance: DARBEPOETIN ALFA
     Indication: ANAEMIA
     Route: 058
  7. ALOXI [Concomitant]
     Active Substance: PALONOSETRON HYDROCHLORIDE
     Route: 042
  8. NEULASTA [Concomitant]
     Active Substance: PEGFILGRASTIM
     Indication: LEUKOPENIA
     Route: 058
  9. PHENERGAN [Concomitant]
     Active Substance: PROMETHAZINE HYDROCHLORIDE
     Route: 042
  10. TAXOTERE [Concomitant]
     Active Substance: DOCETAXEL
  11. FENTANYL. [Concomitant]
     Active Substance: FENTANYL
  12. COUMADIN [Concomitant]
     Active Substance: WARFARIN SODIUM
  13. EPIRUBICIN [Concomitant]
     Active Substance: EPIRUBICIN
     Route: 042
  14. DECADRON [Concomitant]
     Active Substance: DEXAMETHASONE
     Route: 042

REACTIONS (30)
  - Memory impairment [Unknown]
  - Dysphonia [Unknown]
  - Vomiting [Unknown]
  - Stomatitis [Unknown]
  - Chest discomfort [Unknown]
  - Back pain [Unknown]
  - Flank pain [Unknown]
  - Weight decreased [Unknown]
  - Agitation [Unknown]
  - Leukopenia [Unknown]
  - Metastases to central nervous system [Unknown]
  - Death [Fatal]
  - Asthenia [Unknown]
  - Decreased appetite [Unknown]
  - Dehydration [Unknown]
  - Myalgia [Unknown]
  - Off label use [Unknown]
  - Constipation [Unknown]
  - Anxiety [Unknown]
  - Arthralgia [Unknown]
  - Dyspnoea [Unknown]
  - Pain [Unknown]
  - Diarrhoea [Unknown]
  - Catheter site haemorrhage [Unknown]
  - Fatigue [Unknown]
  - Nausea [Unknown]
  - Haemoptysis [Unknown]
  - Dysphagia [Unknown]
  - Goitre [Unknown]
  - Bronchitis [Unknown]
